FAERS Safety Report 5689540-5 (Version None)
Quarter: 2008Q1

REPORT INFORMATION
  Report Type: 
  Country: None (occurrence: None)
  Receive Date: 20080331
  Receipt Date: 20080324
  Transmission Date: 20080703
  Serious: Yes (Hospitalization)
  Sender: FDA-Public Use
  Company Number: US-AMGEN-US270927

PATIENT
  Sex: Female

DRUGS (1)
  1. ARANESP [Suspect]
     Indication: CARDIAC FAILURE CONGESTIVE

REACTIONS (1)
  - HAEMOGLOBIN DECREASED [None]
